FAERS Safety Report 20189324 (Version 1)
Quarter: 2021Q4

REPORT INFORMATION
  Report Type: Spontaneous
  Country: US (occurrence: US)
  Receive Date: 20211215
  Receipt Date: 20211215
  Transmission Date: 20220303
  Serious: No
  Sender: FDA-Public Use
  Company Number: US-REGENERON PHARMACEUTICALS, INC.-2021-26113

PATIENT

DRUGS (1)
  1. EYLEA [Suspect]
     Active Substance: AFLIBERCEPT
     Indication: Type 2 diabetes mellitus
     Dosage: 2 MG, EVERY 6-8 WEEKS
     Route: 031
     Dates: start: 20210217

REACTIONS (1)
  - Off label use [Unknown]
